FAERS Safety Report 4455469-3 (Version None)
Quarter: 2004Q3

REPORT INFORMATION
  Report Type: 
  Country: None (occurrence: None)
  Receive Date: 20040917
  Receipt Date: 20040827
  Transmission Date: 20050211
  Serious: Yes (Death, Hospitalization)
  Sender: FDA-Public Use
  Company Number: AU_040808012

PATIENT
  Age: 90 Year
  Sex: Female

DRUGS (2)
  1. ZYPREXA [Suspect]
     Indication: DELUSION
     Dosage: 10 MG
     Dates: start: 20040801
  2. ANTI-HYPERTENSIVE [Concomitant]

REACTIONS (2)
  - DYSTONIA [None]
  - OBSTRUCTIVE AIRWAYS DISORDER [None]
